FAERS Safety Report 9870985 (Version 1)
Quarter: 2014Q1

REPORT INFORMATION
  Report Type: Spontaneous
  Country: US (occurrence: None)
  Receive Date: 20140203
  Receipt Date: 20140203
  Transmission Date: 20141002
  Serious: Yes (Other)
  Sender: FDA-Public Use
  Company Number: 2014AP000875

PATIENT
  Age: 70 Year
  Sex: 0

DRUGS (4)
  1. ALLOPURINOL TABLETS [Suspect]
  2. METOPROLOL [Concomitant]
  3. FERROUS SULFATE [Concomitant]
  4. LANSOPRAZOLE [Suspect]

REACTIONS (2)
  - Oesophageal stenosis [None]
  - Toxic epidermal necrolysis [None]
